FAERS Safety Report 8132738-7 (Version None)
Quarter: 2012Q1

REPORT INFORMATION
  Report Type: 
  Country: None (occurrence: None)
  Receive Date: 20120207
  Receipt Date: 20120127
  Transmission Date: 20120608
  Serious: Yes (Hospitalization)
  Sender: FDA-Public Use
  Company Number: AUR-APL-2010-01832

PATIENT
  Age: 79 Year
  Sex: Male

DRUGS (13)
  1. BENDROFLUMETHIAZIDE (BENDROFLUMETHIAZIDE) [Suspect]
     Indication: POLYURIA
     Dosage: 2.5 MG (2.5 MG, 1 IN 1 D), ORAL
     Route: 048
  2. RAMIPRIL [Suspect]
     Indication: LEFT VENTRICULAR FAILURE
     Dosage: 7.5 MG (7.5 MG, 1 IN 1 D), ORAL
     Route: 048
  3. RAMIPRIL [Suspect]
     Indication: HYPERTENSION
     Dosage: 7.5 MG (7.5 MG, 1 IN 1 D), ORAL
     Route: 048
  4. ATORVASTATIN [Suspect]
     Indication: HYPERCHOLESTEROLAEMIA
     Dosage: 20 MG(2.5 MG, 1 IN 1 D0, ORAL
     Dates: end: 20100712
  5. ASPIRIN [Concomitant]
  6. FUROSEMIDE [Suspect]
     Indication: FLUID OVERLOAD
     Dosage: 40 MG (40 MG, 1 IN 1 D), ORAL
     Route: 048
  7. ACETAMINOPHEN [Concomitant]
  8. PREGABALIN [Concomitant]
  9. OXYCONTIN [Suspect]
     Indication: PHANTOM PAIN
     Dosage: 80 MG (40 MG, 2 IN 1 D), ORAL, 40 MG, ORAL
     Route: 048
     Dates: end: 20100711
  10. OXYCONTIN [Suspect]
     Indication: PHANTOM PAIN
     Dosage: 80 MG (40 MG, 2 IN 1 D), ORAL, 40 MG, ORAL
     Route: 048
     Dates: start: 20100713
  11. METFORMIN HCL [Suspect]
     Indication: DIABETES MELLITUS
     Dosage: 1500 MG (500 MG, 3 IN 1 D), ORAL
     Route: 048
  12. OXYCODONE HYDROCHLORIDE [Suspect]
     Indication: BREAKTHROUGH PAIN
     Dosage: 10 MG, ORAL
     Route: 048
     Dates: end: 20100712
  13. DOXYCYCLINE [Concomitant]

REACTIONS (14)
  - VASCULAR CALCIFICATION [None]
  - FALL [None]
  - RENAL FAILURE ACUTE [None]
  - SEPSIS [None]
  - HYPOPHAGIA [None]
  - HAEMOGLOBIN DECREASED [None]
  - ERYTHEMA [None]
  - MIOSIS [None]
  - DEHYDRATION [None]
  - EMPYEMA [None]
  - SOMNOLENCE [None]
  - CONFUSIONAL STATE [None]
  - BUNDLE BRANCH BLOCK LEFT [None]
  - ACCIDENTAL OVERDOSE [None]
